FAERS Safety Report 4608751-0 (Version None)
Quarter: 2005Q1

REPORT INFORMATION
  Report Type: 
  Country: None (occurrence: None)
  Receive Date: 20050315
  Receipt Date: 20050304
  Transmission Date: 20050727
  Serious: Yes (Hospitalization)
  Sender: FDA-Public Use
  Company Number: NO-BRISTOL-MYERS SQUIBB COMPANY-12891628

PATIENT
  Age: 57 Year
  Sex: Female

DRUGS (8)
  1. COAPROVEL [Suspect]
     Indication: HYPERTENSION
     Dosage: 200 MG/12.5 MG
     Route: 048
  2. DIURAL [Suspect]
     Indication: HYPERTENSION
     Route: 048
  3. ALDACTONE [Suspect]
     Indication: HYPERTENSION
     Route: 048
  4. ALCOHOL [Suspect]
  5. ALBYL-E [Concomitant]
     Indication: HYPERTENSION
  6. NORVASC [Concomitant]
     Indication: HYPERTENSION
  7. SELO-ZOK [Concomitant]
     Indication: HYPERTENSION
  8. LEVAXIN [Concomitant]
     Indication: HYPOTHYROIDISM
     Dosage: 9 TABLETS WEEKLY

REACTIONS (2)
  - ENCEPHALOPATHY [None]
  - HYPONATRAEMIA [None]
